FAERS Safety Report 20669494 (Version 1)
Quarter: 2022Q2

REPORT INFORMATION
  Report Type: Spontaneous
  Country: US (occurrence: US)
  Receive Date: 20220404
  Receipt Date: 20220404
  Transmission Date: 20220721
  Serious: Yes (Other)
  Sender: FDA-Public Use
  Company Number: US-EPIZYME, INC-2022USEPIZYME0539

PATIENT

DRUGS (13)
  1. TAZVERIK [Suspect]
     Active Substance: TAZEMETOSTAT HYDROBROMIDE
     Indication: Follicular lymphoma
     Dosage: 800 MG, BID
     Route: 048
     Dates: start: 20220108
  2. ACYCLOVIR [Concomitant]
     Active Substance: ACYCLOVIR
     Indication: Product used for unknown indication
  3. ALLOPURINOL [Concomitant]
     Active Substance: ALLOPURINOL
     Indication: Product used for unknown indication
  4. ASPIRIN [Concomitant]
     Active Substance: ASPIRIN
     Indication: Product used for unknown indication
  5. ATOVAQUONE [Concomitant]
     Active Substance: ATOVAQUONE
     Indication: Product used for unknown indication
  6. Blood pressure kit [Concomitant]
     Indication: Product used for unknown indication
  7. CITALOPRAM HYDROBROMIDE [Concomitant]
     Active Substance: CITALOPRAM HYDROBROMIDE
     Indication: Product used for unknown indication
  8. CLINDAMYCIN HYDROCHLORIDE [Concomitant]
     Active Substance: CLINDAMYCIN HYDROCHLORIDE
     Indication: Product used for unknown indication
  9. LEVOTHYROXINE SODIUM [Concomitant]
     Active Substance: LEVOTHYROXINE SODIUM
     Indication: Product used for unknown indication
  10. MG PLUS PROTEIN [Concomitant]
     Indication: Product used for unknown indication
  11. NYSTOP [Concomitant]
     Active Substance: NYSTATIN
     Indication: Product used for unknown indication
  12. Thermometer sheaths [Concomitant]
     Indication: Product used for unknown indication
  13. VITAMIN D3 [Concomitant]
     Active Substance: CHOLECALCIFEROL
     Indication: Product used for unknown indication

REACTIONS (1)
  - Pancytopenia [Unknown]
